FAERS Safety Report 6169495-X (Version None)
Quarter: 2009Q2

REPORT INFORMATION
  Report Type: 
  Country: None (occurrence: None)
  Receive Date: 20090424
  Receipt Date: 20081125
  Transmission Date: 20091009
  Serious: No
  Sender: FDA-Public Use
  Company Number: SPV1-2008-02638

PATIENT
  Age: 19 Year
  Sex: Male
  Weight: 65.8 kg

DRUGS (1)
  1. VYVANSE [Suspect]
     Indication: ATTENTION DEFICIT/HYPERACTIVITY DISORDER
     Dosage: 50 MG, 1X/DAY:QD, ORAL
     Route: 048
     Dates: start: 20081105, end: 20081118

REACTIONS (3)
  - URINARY HESITATION [None]
  - URINARY INCONTINENCE [None]
  - UROLOGICAL EXAMINATION ABNORMAL [None]
